FAERS Safety Report 16343593 (Version 3)
Quarter: 2019Q3

REPORT INFORMATION
  Report Type: Spontaneous
  Country: US (occurrence: US)
  Receive Date: 20190522
  Receipt Date: 20190701
  Transmission Date: 20191004
  Serious: No
  Sender: FDA-Public Use
  Company Number: US-PFIZER INC-2016244018

PATIENT
  Age: 62 Year
  Sex: Male
  Weight: 117.9 kg

DRUGS (12)
  1. NORPACE [Suspect]
     Active Substance: DISOPYRAMIDE PHOSPHATE
     Indication: HYPERTROPHIC CARDIOMYOPATHY
     Dosage: 100 MG, UNK
  2. NORPACE [Suspect]
     Active Substance: DISOPYRAMIDE PHOSPHATE
     Dosage: 150 MG, UNK
  3. NORPACE CR [Suspect]
     Active Substance: DISOPYRAMIDE PHOSPHATE
     Indication: BLOOD PRESSURE ABNORMAL
     Dosage: 150 MG, UNK
  4. NORPACE CR [Suspect]
     Active Substance: DISOPYRAMIDE PHOSPHATE
     Dosage: 200 MG, 2X/DAY
     Route: 048
  5. NORPACE CR [Suspect]
     Active Substance: DISOPYRAMIDE PHOSPHATE
     Dosage: UNK
  6. NORPACE [Suspect]
     Active Substance: DISOPYRAMIDE PHOSPHATE
     Dosage: UNK
     Dates: start: 2015
  7. NORPACE [Suspect]
     Active Substance: DISOPYRAMIDE PHOSPHATE
     Dosage: 150 MG, 2X/DAY(150 MG WITH A 100 MG CAPSULE TWICE A DAY, EVERY 12 HOURS BY MOUTH)
     Route: 048
     Dates: start: 2015
  8. NORPACE CR [Suspect]
     Active Substance: DISOPYRAMIDE PHOSPHATE
     Indication: HYPERTENSION
     Dosage: 200 MG, 2X/DAY
  9. NORPACE CR [Suspect]
     Active Substance: DISOPYRAMIDE PHOSPHATE
     Dosage: 150 MG, 2X/DAY
     Route: 048
     Dates: start: 20170914
  10. NORPACE [Suspect]
     Active Substance: DISOPYRAMIDE PHOSPHATE
     Dosage: 150 MG, 2X/DAY (150MG CAPSULE TWICE DURING A 24 HOUR PERIOD)
  11. NORPACE [Suspect]
     Active Substance: DISOPYRAMIDE PHOSPHATE
     Dosage: UNK
  12. NORPACE CR [Suspect]
     Active Substance: DISOPYRAMIDE PHOSPHATE
     Indication: HYPERTROPHIC CARDIOMYOPATHY
     Dosage: 100 MG, 2X/DAY
     Route: 048
     Dates: start: 20170914

REACTIONS (6)
  - Product prescribing error [Unknown]
  - Palpitations [Unknown]
  - Product use in unapproved indication [Unknown]
  - Wrong product administered [Unknown]
  - Product dispensing error [Unknown]
  - Off label use [Unknown]

NARRATIVE: CASE EVENT DATE: 20190319
